FAERS Safety Report 8325698-7 (Version None)
Quarter: 2012Q2

REPORT INFORMATION
  Report Type: 
  Country: None (occurrence: None)
  Receive Date: 20120501
  Receipt Date: 20120501
  Transmission Date: 20120825
  Serious: Yes (Other)
  Sender: FDA-Public Use
  Company Number: None

PATIENT
  Age: 40 Year
  Sex: Female
  Weight: 88.45 kg

DRUGS (1)
  1. LOESTRIN 24 FE [Suspect]
     Indication: UTERINE LEIOMYOMA
     Dosage: 1 PILL
     Route: 002
     Dates: start: 20100415, end: 20100622

REACTIONS (3)
  - HYPERTENSION [None]
  - PULMONARY EMBOLISM [None]
  - DIZZINESS [None]
